FAERS Safety Report 9286449 (Version 2)
Quarter: 2013Q4

REPORT INFORMATION
  Report Type: Spontaneous
  Country: US (occurrence: US)
  Receive Date: 20130513
  Receipt Date: 20131230
  Transmission Date: 20140711
  Serious: Yes (Hospitalization)
  Sender: FDA-Public Use
  Company Number: US-BAYER-2013-059280

PATIENT
  Age: 37 Year
  Sex: Female
  Weight: 76.19 kg

DRUGS (28)
  1. YASMIN [Suspect]
     Dosage: UNK
     Dates: start: 2009, end: 2011
  2. YAZ [Suspect]
     Indication: PREMENSTRUAL DYSPHORIC DISORDER
     Dosage: UNK
     Dates: start: 2009, end: 2011
  3. YAZ [Suspect]
     Indication: PREMENSTRUAL SYNDROME
  4. HYDROCODONE/ACETAMINOPHEN [Concomitant]
     Dosage: 5 -500 MG
     Dates: start: 20110325
  5. DEXAMETHASONE [Concomitant]
     Dosage: 4 MG, UNK
     Dates: start: 20110329
  6. CEPHALEXIN [Concomitant]
     Dosage: 500 MG, UNK
     Dates: start: 20110329
  7. ZOFRAN [Concomitant]
     Dosage: 8 MG, UNK
     Dates: start: 20110321
  8. ZOFRAN [Concomitant]
     Dosage: 8 MG, UNK
     Dates: start: 20110429
  9. GENERLAC [Concomitant]
     Dosage: 10GM/15 ML
     Dates: start: 20110430
  10. LIDOCAINE/PRILOCAINE [LIDOCAINE,PRILOCAINE] [Concomitant]
     Dosage: UNK
     Route: 061
     Dates: start: 20110516
  11. SUCRALFATE [Concomitant]
     Dosage: 1 G, TID
     Route: 048
     Dates: start: 20110610
  12. TAXOTERE [Concomitant]
     Dosage: UNK
     Dates: start: 20110613
  13. CYTOXAN [Concomitant]
     Dosage: UNK
     Dates: start: 20110613
  14. CLOTRIMAZOLE W/BETAMETHASONE DIPROPIONAT [Concomitant]
     Dosage: 45 MG, UNK
     Route: 061
     Dates: start: 20110804
  15. NEXIUM [Concomitant]
     Dosage: 40 MG TAKE ONE CAPSULE EVERY DAY
     Route: 048
     Dates: start: 20110408, end: 20110610
  16. NEXIUM [Concomitant]
     Dosage: 40 MG TAKE ONE CAPSULE EVERY DAY
     Route: 048
     Dates: start: 20110805
  17. SILVER SULFADIAZINE [Concomitant]
     Dosage: 50 MG, QD
     Route: 061
     Dates: start: 20111007
  18. PROMETHAZINE [Concomitant]
     Indication: NAUSEA
     Dosage: 12.5 MG TAKE 1 TABLET EVERY 6 TO 8 HOURS AS NEEDED
     Route: 048
     Dates: start: 20110321, end: 20110421
  19. PROMETHAZINE [Concomitant]
     Indication: NAUSEA
     Dosage: 12.5 MG TAKE 1 TABLET EVERY 6 TO 8 HOURS AS NEEDED
     Route: 048
     Dates: start: 20111024
  20. SERTRALINE [Concomitant]
     Dosage: 50 MG TAKE ONE TABLET EVERY DAY
     Route: 048
     Dates: start: 20110311, end: 20110513
  21. SERTRALINE [Concomitant]
     Dosage: 50 MG TAKE ONE TABLET EVERY DAY
     Route: 048
     Dates: start: 20110805, end: 20111024
  22. XANAX [Concomitant]
     Dosage: 0.5 MG TAKE 1 TABLET EVERY NIGHT
     Route: 048
     Dates: start: 20110516, end: 20110806
  23. XANAX [Concomitant]
     Dosage: 0.5 MG TAKE 1 TABLET EVERY NIGHT
     Route: 048
     Dates: start: 20111024
  24. RADIAPLEXRX [Concomitant]
     Dosage: 170 G, UNK
     Route: 061
     Dates: start: 20110804, end: 20111024
  25. AZITHROMYCIN [Concomitant]
     Dosage: 250 MG, UNK
     Route: 048
     Dates: start: 20110531
  26. AZITHROMYCIN [Concomitant]
     Dosage: 250 MG, UNK
     Dates: start: 20111109
  27. VALACICLOVIR [Concomitant]
     Dosage: 1 G, UNK
     Dates: start: 20111109
  28. WARFARIN [Concomitant]
     Dosage: 5 MG, QD
     Dates: start: 20111121

REACTIONS (9)
  - Pulmonary embolism [None]
  - Abdominal pain [None]
  - Injury [None]
  - Pain [None]
  - Emotional distress [None]
  - General physical health deterioration [None]
  - Anxiety [None]
  - Pain [None]
  - Dyspnoea [None]
